FAERS Safety Report 21519158 (Version 2)
Quarter: 2022Q4

REPORT INFORMATION
  Report Type: Spontaneous
  Country: US (occurrence: US)
  Receive Date: 20221028
  Receipt Date: 20221114
  Transmission Date: 20230113
  Serious: Yes (Death)
  Sender: FDA-Public Use
  Company Number: US-ROCHE-3204800

PATIENT
  Age: 74 Year
  Sex: Male
  Weight: 79.400 kg

DRUGS (19)
  1. CLONAZEPAM [Suspect]
     Active Substance: CLONAZEPAM
     Indication: Product used for unknown indication
     Dosage: ONGOING: NO
  2. TECENTRIQ [Suspect]
     Active Substance: ATEZOLIZUMAB
     Indication: Hepatocellular carcinoma
     Dosage: ONGOING: NO?DATE OF SERVICE: 24/JUN/2022 (VIAL, 1200MG)
     Route: 042
     Dates: start: 20210820, end: 20220826
  3. AVASTIN [Suspect]
     Active Substance: BEVACIZUMAB
     Indication: Hepatocellular carcinoma
     Dosage: ONGOING: NO
     Route: 042
     Dates: start: 20220214, end: 20220603
  4. OXYCODONE [Concomitant]
     Active Substance: OXYCODONE
  5. NITROSTAT [Concomitant]
     Active Substance: NITROGLYCERIN
  6. LIDOCARE [Concomitant]
  7. LIDOCAINE [Concomitant]
     Active Substance: LIDOCAINE
  8. FLOMAX [Concomitant]
     Active Substance: TAMSULOSIN HYDROCHLORIDE
  9. TORSEMIDE [Concomitant]
     Active Substance: TORSEMIDE
  10. MS CONTIN [Concomitant]
     Active Substance: MORPHINE SULFATE
  11. ALDACTONE [Concomitant]
     Active Substance: SPIRONOLACTONE
  12. ZOFRAN [Concomitant]
     Active Substance: ONDANSETRON HYDROCHLORIDE
  13. MOVANTIK [Concomitant]
     Active Substance: NALOXEGOL OXALATE
  14. NARCAN [Concomitant]
     Active Substance: NALOXONE HYDROCHLORIDE
  15. MIRALAX [Concomitant]
     Active Substance: POLYETHYLENE GLYCOL 3350
  16. XIFAXAN [Concomitant]
     Active Substance: RIFAXIMIN
  17. VENTOLIN HFA [Concomitant]
     Active Substance: ALBUTEROL SULFATE
  18. BETAMETHASONE [Concomitant]
     Active Substance: BETAMETHASONE
  19. VITAMIN D2 [Concomitant]
     Active Substance: ERGOCALCIFEROL

REACTIONS (1)
  - Death [Fatal]

NARRATIVE: CASE EVENT DATE: 20220922
